FAERS Safety Report 8117724-5 (Version None)
Quarter: 2012Q1

REPORT INFORMATION
  Report Type: 
  Country: None (occurrence: None)
  Receive Date: 20120203
  Receipt Date: 20120203
  Transmission Date: 20120608
  Serious: Yes (Life-Threatening, Hospitalization)
  Sender: FDA-Public Use
  Company Number: None

PATIENT
  Age: 76 Year
  Sex: Male
  Weight: 82.7 kg

DRUGS (3)
  1. DIVALPROEX SODIUM [Suspect]
     Indication: MANIA
     Dosage: 2000 MG AT BEDTIME PO
     Route: 048
     Dates: start: 19951226, end: 20111027
  2. DIVALPROEX SODIUM [Suspect]
     Indication: BIPOLAR DISORDER
     Dosage: 2000 MG AT BEDTIME PO
     Route: 048
     Dates: start: 19951226, end: 20111027
  3. TRAMADOL HCL [Suspect]
     Indication: PAIN
     Dosage: 150 MG BID PO
     Route: 048
     Dates: start: 20100101, end: 20111031

REACTIONS (1)
  - SEROTONIN SYNDROME [None]
